FAERS Safety Report 24072317 (Version 1)
Quarter: 2024Q3

REPORT INFORMATION
  Report Type: Spontaneous
  Country: US (occurrence: US)
  Receive Date: 20240710
  Receipt Date: 20240710
  Transmission Date: 20241017
  Serious: No
  Sender: ELI LILLY AND CO
  Company Number: US-ELI_LILLY_AND_COMPANY-US202407004941

PATIENT

DRUGS (1)
  1. TIRZEPATIDE [Suspect]
     Active Substance: TIRZEPATIDE
     Indication: Weight control
     Dosage: UNK UNK, 2/W
     Route: 065

REACTIONS (4)
  - Product tampering [Unknown]
  - Dehydration [Unknown]
  - Hypoglycaemia [Unknown]
  - Constipation [Unknown]
